FAERS Safety Report 10175318 (Version 2)
Quarter: 2014Q2

REPORT INFORMATION
  Report Type: Report from Study
  Country: US (occurrence: US)
  Receive Date: 20140515
  Receipt Date: 20140523
  Transmission Date: 20141212
  Serious: Yes (Death, Other)
  Sender: FDA-Public Use
  Company Number: US-EXELIXIS-CABO-14004274

PATIENT
  Sex: Female
  Weight: 28.7 kg

DRUGS (1)
  1. CABOZANTINIB [Suspect]
     Indication: NEOPLASM MALIGNANT
     Dosage: 60 MG, QD
     Route: 048
     Dates: start: 20140403, end: 20140419

REACTIONS (4)
  - Renal failure [Fatal]
  - Anaemia [Fatal]
  - Malignant neoplasm progression [Unknown]
  - Off label use [Unknown]
